FAERS Safety Report 8303124-1 (Version None)
Quarter: 2012Q2

REPORT INFORMATION
  Report Type: 
  Country: None (occurrence: None)
  Receive Date: 20120423
  Receipt Date: 20120416
  Transmission Date: 20120825
  Serious: Yes (Hospitalization)
  Sender: FDA-Public Use
  Company Number: US-BIOGENIDEC-2012BI007847

PATIENT
  Age: 56 Year
  Sex: Male

DRUGS (1)
  1. TYSABRI [Suspect]
     Indication: MULTIPLE SCLEROSIS
     Route: 042
     Dates: start: 20090311, end: 20111212

REACTIONS (5)
  - LOSS OF CONSCIOUSNESS [None]
  - HIP FRACTURE [None]
  - FALL [None]
  - ATRIAL FIBRILLATION [None]
  - CONCUSSION [None]
